FAERS Safety Report 5518977-X (Version None)
Quarter: 2007Q4

REPORT INFORMATION
  Report Type: 
  Country: None (occurrence: None)
  Receive Date: 20071116
  Receipt Date: 20071108
  Transmission Date: 20080405
  Serious: Yes (Hospitalization, Other)
  Sender: FDA-Public Use
  Company Number: PHBS2007BR18681

PATIENT
  Age: 14 Year
  Sex: Male

DRUGS (2)
  1. CATAFLAM [Suspect]
     Indication: INFLAMMATION
     Route: 048
  2. DESCON [Suspect]
     Indication: INFLUENZA

REACTIONS (3)
  - HYPERHIDROSIS [None]
  - PYREXIA [None]
  - TREMOR [None]
